FAERS Safety Report 5250863-5 (Version None)
Quarter: 2007Q1

REPORT INFORMATION
  Report Type: 
  Country: None (occurrence: None)
  Receive Date: 20070228
  Receipt Date: 20060817
  Transmission Date: 20070707
  Serious: No
  Sender: FDA-Public Use
  Company Number: US-GLAXOSMITHKLINE-A0612981A

PATIENT
  Age: 23 Year
  Sex: Female
  Weight: 49.5 kg

DRUGS (2)
  1. LAMICTAL [Suspect]
     Indication: EPILEPSY
     Dosage: 50MG PER DAY
     Route: 048
     Dates: start: 20060401
  2. NO CONCURRENT MEDICATION [Concomitant]

REACTIONS (1)
  - COUGH [None]
